FAERS Safety Report 6417091-9 (Version None)
Quarter: 2009Q4

REPORT INFORMATION
  Report Type: 
  Country: None (occurrence: None)
  Receive Date: 20091028
  Receipt Date: 20091022
  Transmission Date: 20100525
  Serious: Yes (Other)
  Sender: FDA-Public Use
  Company Number: US-TEVA-212690USA

PATIENT

DRUGS (2)
  1. AZILECT [Suspect]
  2. UNKNOWN MEDICATION [Suspect]

REACTIONS (1)
  - ANGIOEDEMA [None]
